FAERS Safety Report 9821993 (Version 3)
Quarter: 2014Q2

REPORT INFORMATION
  Report Type: Report from Study
  Country: SK (occurrence: SK)
  Receive Date: 20140116
  Receipt Date: 20140507
  Transmission Date: 20141212
  Serious: Yes (Other)
  Sender: FDA-Public Use
  Company Number: SK-US-EMD SERONO, INC.-7261793

PATIENT
  Sex: Female

DRUGS (9)
  1. PERGOVERIS [Suspect]
     Indication: IN VITRO FERTILISATION
     Route: 058
     Dates: start: 20111206, end: 20111209
  2. GONAL-F [Suspect]
     Indication: IN VITRO FERTILISATION
     Route: 058
     Dates: start: 20111201, end: 20111205
  3. TRIPTORELIN [Concomitant]
     Indication: PRODUCT USED FOR UNKNOWN INDICATION
     Route: 058
     Dates: start: 20111116, end: 20111209
  4. PROPOFOL [Concomitant]
     Indication: PRODUCT USED FOR UNKNOWN INDICATION
     Route: 042
     Dates: start: 20111212, end: 20111212
  5. AUGMENTIN [Concomitant]
     Indication: PROPHYLAXIS
     Route: 048
     Dates: start: 20111211, end: 20111212
  6. PENTAZOCINE [Concomitant]
     Indication: PRODUCT USED FOR UNKNOWN INDICATION
     Route: 042
     Dates: start: 20111212, end: 20111212
  7. PROGESTERONE [Concomitant]
     Indication: PRODUCT USED FOR UNKNOWN INDICATION
     Route: 067
     Dates: start: 20120111
  8. PROGESTERONE [Concomitant]
     Route: 067
     Dates: start: 20111212, end: 20120110
  9. HCG [Concomitant]
     Indication: PRODUCT USED FOR UNKNOWN INDICATION
     Route: 058
     Dates: start: 20111210, end: 20111210

REACTIONS (1)
  - Abortion missed [Unknown]
